FAERS Safety Report 9323554 (Version 1)
Quarter: 2013Q2

REPORT INFORMATION
  Report Type: Spontaneous
  Country: US (occurrence: US)
  Receive Date: 20130603
  Receipt Date: 20130603
  Transmission Date: 20140414
  Serious: No
  Sender: FDA-Public Use
  Company Number: US-009507513-1305USA016422

PATIENT
  Sex: Male

DRUGS (3)
  1. ZETIA [Suspect]
     Dosage: UNK
  2. METFORMIN [Suspect]
     Dosage: UNK
  3. VICTOZA [Suspect]
     Dosage: 0.6 MG, UNK

REACTIONS (3)
  - Abdominal pain lower [Unknown]
  - Dyspepsia [Unknown]
  - Abdominal discomfort [Unknown]
